FAERS Safety Report 14963894 (Version 2)
Quarter: 2018Q2

REPORT INFORMATION
  Report Type: Spontaneous
  Country: JP (occurrence: JP)
  Receive Date: 20180601
  Receipt Date: 20180606
  Transmission Date: 20180711
  Serious: Yes (Hospitalization, Other)
  Sender: FDA-Public Use
  Company Number: JP-MYLANLABS-2017M1078599

PATIENT

DRUGS (8)
  1. THEO-DUR [Suspect]
     Active Substance: THEOPHYLLINE ANHYDROUS
     Route: 048
     Dates: start: 20171127, end: 20171128
  2. LEVOFLOXACIN HEMIHYDRATE [Concomitant]
     Active Substance: LEVOFLOXACIN
     Indication: PRODUCT USED FOR UNKNOWN INDICATION
     Route: 048
     Dates: start: 20171113, end: 20171126
  3. THEO-DUR [Suspect]
     Active Substance: THEOPHYLLINE ANHYDROUS
     Indication: BRONCHIECTASIS
     Route: 048
     Dates: start: 20160520, end: 20160814
  4. THEO-DUR [Suspect]
     Active Substance: THEOPHYLLINE ANHYDROUS
     Route: 048
     Dates: start: 20171202, end: 20171203
  5. ERYTHROCIN [Suspect]
     Active Substance: ERYTHROMYCIN LACTOBIONATE
     Dosage: 200 MG, BID
     Route: 048
     Dates: start: 20171127, end: 20171128
  6. ERYTHROCIN [Suspect]
     Active Substance: ERYTHROMYCIN LACTOBIONATE
     Dosage: 200 MG, BID
     Route: 048
     Dates: start: 20171202, end: 20171203
  7. THEO-DUR [Suspect]
     Active Substance: THEOPHYLLINE ANHYDROUS
     Route: 048
     Dates: start: 20161107, end: 20170512
  8. ERYTHROCIN [Suspect]
     Active Substance: ERYTHROMYCIN LACTOBIONATE
     Indication: BRONCHIECTASIS
     Dosage: UNK
     Route: 048
     Dates: start: 20160520, end: 20170512

REACTIONS (5)
  - Jaundice [Unknown]
  - Hepatic function abnormal [Recovering/Resolving]
  - Abdominal pain upper [Recovering/Resolving]
  - Pallor [None]
  - Drug-induced liver injury [Unknown]

NARRATIVE: CASE EVENT DATE: 20171128
